FAERS Safety Report 6083734-5 (Version None)
Quarter: 2009Q1

REPORT INFORMATION
  Report Type: 
  Country: None (occurrence: None)
  Receive Date: 20090217
  Receipt Date: 20090217
  Transmission Date: 20090719
  Serious: No
  Sender: FDA-Public Use
  Company Number: None

PATIENT
  Age: 49 Year
  Sex: Female
  Weight: 104.3273 kg

DRUGS (1)
  1. METOPROLOL SUCCINATE [Suspect]
     Indication: HYPERTENSION
     Dosage: 50 MG PO BID
     Route: 048
     Dates: start: 20081026

REACTIONS (4)
  - BRONCHOSPASM [None]
  - PSORIASIS [None]
  - RASH [None]
  - WHEEZING [None]
